FAERS Safety Report 8114915-4 (Version None)
Quarter: 2012Q1

REPORT INFORMATION
  Report Type: 
  Country: None (occurrence: None)
  Receive Date: 20120206
  Receipt Date: 20120125
  Transmission Date: 20120608
  Serious: Yes (Hospitalization, Other)
  Sender: FDA-Public Use
  Company Number: SE-JNJFOC-20120111372

PATIENT
  Age: 41 Year
  Sex: Male

DRUGS (6)
  1. IMURAN [Concomitant]
     Indication: COLITIS ULCERATIVE
     Dates: start: 20111103
  2. MESALAMINE [Concomitant]
  3. REMICADE [Suspect]
     Indication: COLITIS
     Route: 042
     Dates: start: 20040326, end: 20040326
  4. COLIFOAM [Concomitant]
     Dates: start: 20110901
  5. PREDNISOLONE [Concomitant]
     Dates: start: 20110901
  6. CORTISONE ACETATE [Concomitant]
     Indication: COLITIS ULCERATIVE
     Dates: start: 20111103

REACTIONS (2)
  - B-CELL LYMPHOMA [None]
  - DRUG INEFFECTIVE [None]
